FAERS Safety Report 16810737 (Version 1)
Quarter: 2019Q3

REPORT INFORMATION
  Report Type: Spontaneous
  Country: DE (occurrence: DE)
  Receive Date: 20190916
  Receipt Date: 20190916
  Transmission Date: 20191005
  Serious: Yes (Other)
  Sender: FDA-Public Use
  Company Number: DE-MYLANLABS-2019M1085685

PATIENT
  Age: 3 Year
  Sex: Female

DRUGS (2)
  1. SULFOTRIM                          /00086101/ [Suspect]
     Active Substance: SULFAMETHOXAZOLE\TRIMETHOPRIM
     Indication: PARTIAL SEIZURES
     Dosage: UNK
     Route: 065
  2. LEVETIRACETAM. [Suspect]
     Active Substance: LEVETIRACETAM
     Indication: PARTIAL SEIZURES
     Dosage: UNK
     Route: 065

REACTIONS (2)
  - Disease recurrence [Recovering/Resolving]
  - Seizure [Recovering/Resolving]
